FAERS Safety Report 7318873-1 (Version None)
Quarter: 2011Q1

REPORT INFORMATION
  Report Type: 
  Country: None (occurrence: None)
  Receive Date: 20110228
  Receipt Date: 20110225
  Transmission Date: 20110831
  Serious: Yes (Hospitalization)
  Sender: FDA-Public Use
  Company Number: FR-JNJFOC-20101208202

PATIENT
  Sex: Female

DRUGS (4)
  1. ZOFRAN [Suspect]
     Indication: PREMEDICATION
     Route: 065
  2. DEXAMETHASONE [Suspect]
     Indication: PREMEDICATION
     Route: 065
  3. CAELYX [Suspect]
     Indication: OVARIAN CANCER
     Route: 042
  4. YONDELIS [Suspect]
     Indication: OVARIAN CANCER
     Route: 042

REACTIONS (5)
  - PALPITATIONS [None]
  - FATIGUE [None]
  - DYSPNOEA [None]
  - MALAISE [None]
  - INFUSION RELATED REACTION [None]
